FAERS Safety Report 10917472 (Version 3)
Quarter: 2015Q2

REPORT INFORMATION
  Report Type: Spontaneous
  Country: JP (occurrence: JP)
  Receive Date: 20150316
  Receipt Date: 20150518
  Transmission Date: 20150821
  Serious: Yes (Hospitalization)
  Sender: FDA-Public Use
  Company Number: JP-JNJFOC-20150302417

PATIENT
  Age: 51 Year
  Sex: Male
  Weight: 58 kg

DRUGS (17)
  1. CONTOMIN [Suspect]
     Active Substance: CHLORPROMAZINE
     Indication: SCHIZOAFFECTIVE DISORDER
     Route: 048
     Dates: start: 20150224, end: 2015
  2. LANDSEN [Suspect]
     Active Substance: CLONAZEPAM
     Indication: SCHIZOAFFECTIVE DISORDER
     Route: 048
     Dates: start: 20150217, end: 20150223
  3. ZYPREXA [Suspect]
     Active Substance: OLANZAPINE
     Indication: SCHIZOAFFECTIVE DISORDER
     Route: 048
     Dates: start: 20120803, end: 2015
  4. TASMOLIN [Concomitant]
     Active Substance: BIPERIDEN
     Indication: SCHIZOAFFECTIVE DISORDER
     Route: 048
     Dates: start: 20150316
  5. CONTOMIN [Suspect]
     Active Substance: CHLORPROMAZINE
     Indication: SCHIZOAFFECTIVE DISORDER
     Route: 048
  6. MAGMITT [Concomitant]
     Active Substance: MAGNESIUM OXIDE
     Indication: PRODUCT USED FOR UNKNOWN INDICATION
     Route: 048
  7. LANDSEN [Suspect]
     Active Substance: CLONAZEPAM
     Indication: SCHIZOAFFECTIVE DISORDER
     Route: 048
     Dates: start: 20140704, end: 20150119
  8. ZYPREXA [Concomitant]
     Active Substance: OLANZAPINE
     Indication: SCHIZOAFFECTIVE DISORDER
     Route: 048
     Dates: start: 20150316
  9. MAGMITT [Concomitant]
     Active Substance: MAGNESIUM OXIDE
     Indication: PRODUCT USED FOR UNKNOWN INDICATION
     Route: 048
  10. LUNESTA [Suspect]
     Active Substance: ESZOPICLONE
     Indication: SCHIZOAFFECTIVE DISORDER
     Route: 048
     Dates: start: 20130823, end: 2015
  11. LANDSEN [Suspect]
     Active Substance: CLONAZEPAM
     Indication: SCHIZOAFFECTIVE DISORDER
     Route: 048
     Dates: start: 20150120, end: 20150216
  12. INVEGA [Suspect]
     Active Substance: PALIPERIDONE
     Indication: SCHIZOAFFECTIVE DISORDER
     Route: 048
     Dates: start: 20150316
  13. LANDSEN [Suspect]
     Active Substance: CLONAZEPAM
     Indication: SCHIZOAFFECTIVE DISORDER
     Route: 048
     Dates: start: 20150224, end: 2015
  14. AKINETON [Suspect]
     Active Substance: BIPERIDEN HYDROCHLORIDE
     Indication: SCHIZOAFFECTIVE DISORDER
     Route: 048
     Dates: start: 20130412, end: 2015
  15. INVEGA [Suspect]
     Active Substance: PALIPERIDONE
     Indication: SCHIZOAFFECTIVE DISORDER
     Route: 048
     Dates: start: 20140718, end: 2015
  16. CONTOMIN [Suspect]
     Active Substance: CHLORPROMAZINE
     Indication: SCHIZOAFFECTIVE DISORDER
     Route: 048
     Dates: end: 201502
  17. LUNESTA [Suspect]
     Active Substance: ESZOPICLONE
     Indication: INITIAL INSOMNIA
     Route: 048
     Dates: start: 20130823, end: 2015

REACTIONS (5)
  - Decreased appetite [Recovering/Resolving]
  - Intentional self-injury [Recovering/Resolving]
  - Product use issue [Unknown]
  - Initial insomnia [Recovering/Resolving]
  - Irritability [Recovering/Resolving]

NARRATIVE: CASE EVENT DATE: 20150120
